FAERS Safety Report 11992593 (Version 1)
Quarter: 2016Q1

REPORT INFORMATION
  Report Type: Spontaneous
  Country: US (occurrence: US)
  Receive Date: 20160203
  Receipt Date: 20160203
  Transmission Date: 20160526
  Serious: No
  Sender: FDA-Public Use
  Company Number: US-UCBSA-2015012023

PATIENT

DRUGS (6)
  1. TOPIRAMATE. [Concomitant]
     Active Substance: TOPIRAMATE
     Indication: SEIZURE
     Dosage: FOR A COUPLE OF YEARS
  2. KEPPRA [Suspect]
     Active Substance: LEVETIRACETAM
     Indication: SEIZURE
     Dosage: 3000 MG (6 PILLS), A COUPLE OF YEARS AGO
  3. DEPAKOTE [Suspect]
     Active Substance: DIVALPROEX SODIUM
     Indication: EPILEPSY
     Dosage: 1000 MG
  4. DEPAKOTE [Suspect]
     Active Substance: DIVALPROEX SODIUM
     Dosage: 25000 MG
  5. TOPIRAMATE. [Concomitant]
     Active Substance: TOPIRAMATE
     Dosage: 50 MG
  6. KEPPRA [Suspect]
     Active Substance: LEVETIRACETAM
     Dosage: 15000 MG

REACTIONS (7)
  - Disturbance in attention [Unknown]
  - Lethargy [Unknown]
  - Overdose [Unknown]
  - Confusional state [Unknown]
  - Sluggishness [Unknown]
  - Nausea [Unknown]
  - Off label use [Unknown]
